FAERS Safety Report 11969559 (Version 1)
Quarter: 2016Q1

REPORT INFORMATION
  Report Type: Spontaneous
  Country: US (occurrence: US)
  Receive Date: 20160128
  Receipt Date: 20160128
  Transmission Date: 20160526
  Serious: Yes (Other)
  Sender: FDA-Public Use
  Company Number: US-ACTAVIS-2016-01633

PATIENT
  Age: 49 Year
  Sex: Male

DRUGS (1)
  1. FENTANYL CITRATE (WATSON LABORATORIES) [Suspect]
     Active Substance: FENTANYL CITRATE
     Indication: NECK PAIN
     Dosage: 50 MCG BOLUS
     Route: 040

REACTIONS (2)
  - Pulmonary oedema [Recovering/Resolving]
  - Hypertonia [Recovering/Resolving]
